FAERS Safety Report 7437258-0 (Version None)
Quarter: 2011Q2

REPORT INFORMATION
  Report Type: 
  Country: None (occurrence: None)
  Receive Date: 20110426
  Receipt Date: 20110422
  Transmission Date: 20111010
  Serious: Yes (Other)
  Sender: FDA-Public Use
  Company Number: US-BRISTOL-MYERS SQUIBB COMPANY-15692916

PATIENT
  Age: 36 Year
  Sex: Female
  Weight: 58 kg

DRUGS (7)
  1. DIOVAN [Concomitant]
  2. COREG [Concomitant]
  3. ABILIFY [Suspect]
     Dosage: INITIATED AT A DOSE OF 2MG ONCE DAILY
     Dates: start: 20110301
  4. PROZAC [Concomitant]
  5. ADDERALL 10 [Concomitant]
  6. INSULIN [Concomitant]
     Dosage: INSULIN PUMP
  7. ATIVAN [Concomitant]

REACTIONS (4)
  - CONFUSIONAL STATE [None]
  - THINKING ABNORMAL [None]
  - DISTURBANCE IN ATTENTION [None]
  - INSOMNIA [None]
